FAERS Safety Report 15785780 (Version 1)
Quarter: 2019Q1

REPORT INFORMATION
  Report Type: Spontaneous
  Country: US (occurrence: US)
  Receive Date: 20190103
  Receipt Date: 20190103
  Transmission Date: 20190417
  Serious: No
  Sender: FDA-Public Use
  Company Number: US-GLAXOSMITHKLINE-US2018234978

PATIENT
  Sex: Male

DRUGS (1)
  1. ABREVA [Suspect]
     Active Substance: DOCOSANOL
     Indication: ORAL HERPES
     Dosage: UNK
     Route: 061

REACTIONS (9)
  - Application site dryness [Not Recovered/Not Resolved]
  - Application site swelling [Not Recovered/Not Resolved]
  - Lip swelling [Not Recovered/Not Resolved]
  - Oral herpes [Unknown]
  - Application site discolouration [Not Recovered/Not Resolved]
  - Application site pustules [Not Recovered/Not Resolved]
  - Application site exfoliation [Not Recovered/Not Resolved]
  - Condition aggravated [Not Recovered/Not Resolved]
  - Application site irritation [Not Recovered/Not Resolved]
